FAERS Safety Report 11092819 (Version 1)
Quarter: 2015Q2

REPORT INFORMATION
  Report Type: Spontaneous
  Country: US (occurrence: None)
  Receive Date: 20150505
  Receipt Date: 20150505
  Transmission Date: 20150821
  Serious: Yes (Life-Threatening)
  Sender: FDA-Public Use
  Company Number: None

PATIENT
  Age: 62 Year
  Sex: Female
  Weight: 109.8 kg

DRUGS (1)
  1. PROTAMINE SULFATE. [Suspect]
     Active Substance: PROTAMINE SULFATE
     Indication: SURGERY
     Route: 042
     Dates: start: 20150326, end: 20150326

REACTIONS (3)
  - Ejection fraction decreased [None]
  - Ventricular hypokinesia [None]
  - Hypotension [None]

NARRATIVE: CASE EVENT DATE: 20150326
